FAERS Safety Report 19224125 (Version 2)
Quarter: 2021Q2

REPORT INFORMATION
  Report Type: Report from Study
  Country: ES (occurrence: ES)
  Receive Date: 20210505
  Receipt Date: 20210514
  Transmission Date: 20210717
  Serious: Yes (Death, Other)
  Sender: FDA-Public Use
  Company Number: ES-GILEAD-2021-0527565

PATIENT
  Age: 80 Year
  Sex: Female

DRUGS (2)
  1. PLASMA [Concomitant]
     Active Substance: HUMAN PLASMA
  2. REMDESIVIR. [Suspect]
     Active Substance: REMDESIVIR
     Indication: COVID-19
     Route: 065

REACTIONS (3)
  - Viral mutation identified [Unknown]
  - Death [Fatal]
  - Blood disorder [Unknown]
